FAERS Safety Report 18751385 (Version 1)
Quarter: 2021Q1

REPORT INFORMATION
  Report Type: Spontaneous
  Country: PT (occurrence: PT)
  Receive Date: 20210118
  Receipt Date: 20210118
  Transmission Date: 20210419
  Serious: Yes (Other)
  Sender: FDA-Public Use
  Company Number: PT-PFIZER INC-2021020341

PATIENT
  Age: 34 Year
  Sex: Female

DRUGS (1)
  1. RITUXIMAB. [Suspect]
     Active Substance: RITUXIMAB
     Indication: MULTIPLE SCLEROSIS
     Dosage: 1 DF (FREQ:4 MO)
     Route: 042

REACTIONS (3)
  - Immunosuppression [Unknown]
  - Vaginal discharge [Unknown]
  - Off label use [Unknown]

NARRATIVE: CASE EVENT DATE: 202012
